FAERS Safety Report 7772321-6 (Version None)
Quarter: 2011Q3

REPORT INFORMATION
  Report Type: 
  Country: None (occurrence: None)
  Receive Date: 20110922
  Receipt Date: 20100825
  Transmission Date: 20111222
  Serious: No
  Sender: FDA-Public Use
  Company Number: US-ASTRAZENECA-2008UW01199

PATIENT
  Age: 37 Year
  Sex: Female

DRUGS (23)
  1. GEODON [Concomitant]
     Dosage: 60 MG, 80 MG
     Dates: start: 20050419, end: 20060101
  2. SEROQUEL [Suspect]
     Dosage: 100-300 MG
     Route: 048
     Dates: start: 20031111, end: 20080311
  3. SEROQUEL [Suspect]
     Dosage: 60 MG-600 MG
     Route: 048
     Dates: start: 20031207
  4. TRAZODONE HYDROCHLORIDE [Concomitant]
     Dosage: 100 MG-300 MG
     Dates: start: 20031120
  5. RESTORIL [Concomitant]
     Dates: start: 20050325
  6. SEROQUEL [Suspect]
     Dosage: 100-300 MG
     Route: 048
     Dates: start: 20031111, end: 20080311
  7. SEROQUEL [Suspect]
     Dosage: 300-600 MG
     Route: 048
     Dates: start: 20040101, end: 20080201
  8. THORAZINE [Concomitant]
  9. SEROQUEL [Suspect]
     Dosage: 100-300 MG
     Route: 048
     Dates: start: 20031111, end: 20080311
  10. SEROQUEL [Suspect]
     Dosage: 60 MG-600 MG
     Route: 048
     Dates: start: 20031207
  11. SEROQUEL [Suspect]
     Dosage: 300-600 MG
     Route: 048
     Dates: start: 20040101, end: 20080201
  12. TOPAMAX [Concomitant]
     Dosage: 25 MG, 50 MG
     Dates: start: 20050419
  13. SEROQUEL [Suspect]
     Indication: DEPRESSION
     Route: 048
     Dates: start: 20020101, end: 20071201
  14. SEROQUEL [Suspect]
     Dosage: 60 MG-600 MG
     Route: 048
     Dates: start: 20031207
  15. SEROQUEL [Suspect]
     Dosage: 300-600 MG
     Route: 048
     Dates: start: 20040101, end: 20080201
  16. RESTORIL [Concomitant]
     Dates: start: 20050621
  17. RISPERDAL [Concomitant]
     Indication: OBSESSIVE-COMPULSIVE DISORDER
     Dosage: 1 MG
     Dates: start: 20031111, end: 20050101
  18. SEROQUEL [Suspect]
     Indication: ANXIETY
     Route: 048
     Dates: start: 20020101, end: 20071201
  19. ZOCOR [Concomitant]
     Indication: HYPERLIPIDAEMIA
     Route: 048
     Dates: start: 20050621
  20. SEROQUEL [Suspect]
     Indication: SCHIZOPHRENIA
     Route: 048
     Dates: start: 20020101, end: 20071201
  21. PROZAC [Concomitant]
     Dates: start: 20040528
  22. AMBIEN [Concomitant]
     Dates: start: 20050903
  23. ABILIFY [Concomitant]

REACTIONS (7)
  - GLUCOSE TOLERANCE IMPAIRED [None]
  - WEIGHT INCREASED [None]
  - HYPERLIPIDAEMIA [None]
  - HYPERGLYCAEMIA [None]
  - DIABETIC COMPLICATION [None]
  - BLOOD CHOLESTEROL INCREASED [None]
  - TYPE 2 DIABETES MELLITUS [None]
